FAERS Safety Report 9464370 (Version 2)
Quarter: 2013Q3

REPORT INFORMATION
  Report Type: Spontaneous
  Country: US (occurrence: US)
  Receive Date: 20130819
  Receipt Date: 20130916
  Transmission Date: 20140515
  Serious: Yes (Other)
  Sender: FDA-Public Use
  Company Number: US-TEVA-423734USA

PATIENT
  Age: 37 Year
  Sex: Female
  Weight: 101.7 kg

DRUGS (2)
  1. PARAGARD 380A [Suspect]
     Indication: CONTRACEPTION
     Route: 015
     Dates: start: 20120503, end: 20130814
  2. WOMEN ONE A DAY [Concomitant]

REACTIONS (3)
  - Device dislocation [Recovered/Resolved]
  - Metrorrhagia [Not Recovered/Not Resolved]
  - Metrorrhagia [Unknown]
